FAERS Safety Report 5116861-7 (Version None)
Quarter: 2006Q3

REPORT INFORMATION
  Report Type: 
  Country: None (occurrence: None)
  Receive Date: 20060925
  Receipt Date: 20060911
  Transmission Date: 20061208
  Serious: Yes (Other)
  Sender: FDA-Public Use
  Company Number: 2006110426

PATIENT
  Age: 53 Year
  Sex: Female
  Weight: 66.2252 kg

DRUGS (7)
  1. GEODON [Suspect]
     Indication: PSEUDODEMENTIA
     Dosage: 120 MG (1 IN 1 D);
     Dates: start: 20060201, end: 20060911
  2. PROZAC [Concomitant]
  3. DEPAKOTE [Concomitant]
  4. ALL OTHER THERAPEUTIC PRODUCTS [Concomitant]
  5. ARICEPT [Concomitant]
  6. SOMA [Concomitant]
  7. .... [Concomitant]

REACTIONS (3)
  - BLOOD CHOLESTEROL INCREASED [None]
  - DYSKINESIA [None]
  - EXTRAPYRAMIDAL DISORDER [None]
